FAERS Safety Report 23715564 (Version 2)
Quarter: 2024Q3

REPORT INFORMATION
  Report Type: Spontaneous
  Country: US (occurrence: US)
  Receive Date: 20240408
  Receipt Date: 20240709
  Transmission Date: 20241017
  Serious: Yes (Hospitalization)
  Sender: JOHNSON AND JOHNSON
  Company Number: US-JNJFOC-20240387475

PATIENT
  Age: 6 Decade
  Sex: Male
  Weight: 101.24 kg

DRUGS (1)
  1. DARZALEX FASPRO [Suspect]
     Active Substance: DARATUMUMAB\HYALURONIDASE-FIHJ
     Indication: Plasma cell myeloma
     Dosage: COMPLETED 16 CYCLES TOTAL. LAST RECEIVED DARATUMUMAB ON 01-MAR-2024
     Route: 058
     Dates: start: 202206, end: 20240301

REACTIONS (1)
  - Angioedema [Unknown]
